FAERS Safety Report 26083156 (Version 1)
Quarter: 2025Q4

REPORT INFORMATION
  Report Type: Spontaneous
  Country: EU (occurrence: EU)
  Receive Date: 20251124
  Receipt Date: 20251124
  Transmission Date: 20260117
  Serious: Yes (Other)
  Sender: PFIZER
  Company Number: None

PATIENT
  Age: 72 Year
  Sex: Male

DRUGS (2)
  1. CLINDAMYCIN HYDROCHLORIDE [Suspect]
     Active Substance: CLINDAMYCIN HYDROCHLORIDE
     Indication: Device related infection
     Dosage: 2400 MG, 1X/DAY
     Route: 048
     Dates: start: 20250912, end: 20250918
  2. BACTRIM [Suspect]
     Active Substance: SULFAMETHOXAZOLE\TRIMETHOPRIM
     Indication: Device related infection
     Dosage: 4 DF, 1X/DAY
     Route: 048
     Dates: start: 20250912, end: 20250918

REACTIONS (1)
  - Hepatic cytolysis [Recovering/Resolving]

NARRATIVE: CASE EVENT DATE: 20250915
